FAERS Safety Report 5212108-1 (Version None)
Quarter: 2007Q1

REPORT INFORMATION
  Report Type: 
  Country: None (occurrence: None)
  Receive Date: 20070118
  Receipt Date: 20070110
  Transmission Date: 20070707
  Serious: Yes (Hospitalization)
  Sender: FDA-Public Use
  Company Number: US-MERCK-0701USA01642

PATIENT
  Age: 77 Year
  Sex: Female

DRUGS (6)
  1. PRINIVIL [Suspect]
     Route: 048
  2. FOSAMAX [Concomitant]
     Route: 048
  3. LEVOTHYROXINE SODIUM [Concomitant]
     Route: 065
  4. METFORMIN [Concomitant]
     Route: 065
  5. NAPROXEN [Suspect]
     Route: 065
  6. ZOCOR [Concomitant]
     Route: 048

REACTIONS (1)
  - BABESIOSIS [None]
